FAERS Safety Report 20972828 (Version 1)
Quarter: 2022Q2

REPORT INFORMATION
  Report Type: Spontaneous
  Country: US (occurrence: US)
  Receive Date: 20220617
  Receipt Date: 20220617
  Transmission Date: 20220721
  Serious: Yes (Other)
  Sender: FDA-Public Use
  Company Number: US-BRISTOL-MYERS SQUIBB COMPANY-2022-057606

PATIENT

DRUGS (2)
  1. ELIQUIS [Suspect]
     Active Substance: APIXABAN
     Indication: Deep vein thrombosis
     Dosage: DOSE : 5 MG;     FREQ : 5 MG BID
     Dates: start: 202205
  2. HEPARIN [Concomitant]
     Active Substance: HEPARIN SODIUM
     Indication: Deep vein thrombosis

REACTIONS (2)
  - Pulmonary embolism [Unknown]
  - Prescribed underdose [Unknown]

NARRATIVE: CASE EVENT DATE: 20220606
